FAERS Safety Report 10097798 (Version 1)
Quarter: 2014Q2

REPORT INFORMATION
  Report Type: Spontaneous
  Country: US (occurrence: US)
  Receive Date: 20140423
  Receipt Date: 20140423
  Transmission Date: 20141212
  Serious: No
  Sender: FDA-Public Use
  Company Number: US-BIOGENIDEC-2014BI035329

PATIENT
  Age: 45 Year
  Sex: Female

DRUGS (3)
  1. TECFIDERA [Suspect]
     Indication: MULTIPLE SCLEROSIS
     Route: 048
     Dates: start: 20130901, end: 20140219
  2. AMPYRA [Concomitant]
     Indication: MULTIPLE SCLEROSIS
  3. BACLOFEN [Concomitant]
     Indication: MULTIPLE SCLEROSIS

REACTIONS (2)
  - Underdose [Recovered/Resolved]
  - Diarrhoea [Unknown]
